FAERS Safety Report 6265044-6 (Version None)
Quarter: 2009Q3

REPORT INFORMATION
  Report Type: 
  Country: None (occurrence: None)
  Receive Date: 20090713
  Receipt Date: 20090629
  Transmission Date: 20100115
  Serious: Yes (Other)
  Sender: FDA-Public Use
  Company Number: GB-PFIZER INC-2009233920

PATIENT

DRUGS (1)
  1. CHAMPIX [Suspect]
     Indication: SMOKING CESSATION THERAPY

REACTIONS (4)
  - BREAST CANCER [None]
  - CHRONIC OBSTRUCTIVE PULMONARY DISEASE [None]
  - RHEUMATOID ARTHRITIS [None]
  - WEIGHT INCREASED [None]
